FAERS Safety Report 10035157 (Version 1)
Quarter: 2014Q1

REPORT INFORMATION
  Report Type: Spontaneous
  Country: US (occurrence: None)
  Receive Date: 20140306
  Receipt Date: 20140306
  Transmission Date: 20141002
  Serious: Yes (Other)
  Sender: FDA-Public Use
  Company Number: 163-21880-13062597

PATIENT
  Age: 46 Year
  Sex: Male

DRUGS (5)
  1. REVLIMID [Suspect]
     Indication: PLASMA CELL MYELOMA
     Dosage: 25 MG, 21 IN 28 D, PO 11MAR2013 - ONGOING THERAPY
     Route: 048
     Dates: start: 20130311
  2. GABAPENTIN (GABAPENTIN) [Concomitant]
  3. FENTANYL (FENTANYL) [Concomitant]
  4. SENNA (SENNA) [Concomitant]
  5. DEXAMETHASONE (DEXAMETHASONE) [Concomitant]

REACTIONS (1)
  - Thrombosis [None]
